FAERS Safety Report 21849738 (Version 1)
Quarter: 2023Q1

REPORT INFORMATION
  Report Type: Spontaneous
  Country: US (occurrence: US)
  Receive Date: 20230111
  Receipt Date: 20230111
  Transmission Date: 20230418
  Serious: No
  Sender: FDA-Public Use
  Company Number: US-FOUNDATIONCONSUMERHC-2022-US-023774

PATIENT
  Age: 67 Year
  Sex: Female
  Weight: 95.26 kg

DRUGS (4)
  1. PLAN B ONE-STEP [Suspect]
     Active Substance: LEVONORGESTREL
     Indication: Contraception
     Dosage: 1.5 MG DAILY X 25 -30 TIMES
     Route: 048
     Dates: start: 202209, end: 20221002
  2. INGREZZA [Suspect]
     Active Substance: VALBENAZINE
     Dates: start: 20220925
  3. TOPIRAMATE [Concomitant]
     Active Substance: TOPIRAMATE
  4. unspecified mental health medication [Concomitant]

REACTIONS (7)
  - Intentional product misuse [Recovered/Resolved]
  - Vaginal haemorrhage [Recovered/Resolved]
  - Dizziness [Recovered/Resolved]
  - Vomiting [Recovered/Resolved]
  - Drooling [Not Recovered/Not Resolved]
  - Tremor [Not Recovered/Not Resolved]
  - Product use in unapproved indication [Recovered/Resolved]

NARRATIVE: CASE EVENT DATE: 20220901
